FAERS Safety Report 21215331 (Version 1)
Quarter: 2022Q3

REPORT INFORMATION
  Report Type: Spontaneous
  Country: SE (occurrence: SE)
  Receive Date: 20220816
  Receipt Date: 20220816
  Transmission Date: 20221027
  Serious: Yes (Death, Life-Threatening, Hospitalization, Other)
  Sender: FDA-Public Use
  Company Number: SE-CELLTRION HEALTHCARE HUNGARY KFT-2022SE009512

PATIENT
  Age: 3 Year
  Sex: Female

DRUGS (16)
  1. REMICADE [Suspect]
     Active Substance: INFLIXIMAB
     Indication: Pneumonia
     Dosage: 5 MG/KG
     Route: 065
     Dates: start: 2020
  2. REMICADE [Suspect]
     Active Substance: INFLIXIMAB
     Indication: COVID-19
  3. HUMAN IMMUNOGLOBULIN G [Suspect]
     Active Substance: HUMAN IMMUNOGLOBULIN G
     Indication: COVID-19
     Dosage: 1 GRAM PER KILOGRAM FOR 2 DAYS (IMMUNOMODULATORY DOSE)
     Route: 042
  4. HUMAN IMMUNOGLOBULIN G [Suspect]
     Active Substance: HUMAN IMMUNOGLOBULIN G
     Indication: Ascites
  5. HUMAN IMMUNOGLOBULIN G [Suspect]
     Active Substance: HUMAN IMMUNOGLOBULIN G
     Indication: Pneumonia
  6. HUMAN IMMUNOGLOBULIN G [Suspect]
     Active Substance: HUMAN IMMUNOGLOBULIN G
     Indication: Hepatosplenomegaly
  7. PREDNISOLONE [Suspect]
     Active Substance: PREDNISOLONE
     Indication: Pneumonia
     Dosage: 2 MG/KG/DAY
     Route: 065
  8. PREDNISOLONE [Suspect]
     Active Substance: PREDNISOLONE
     Indication: Pneumonia
  9. ASPIRIN [Suspect]
     Active Substance: ASPIRIN
     Indication: COVID-19
     Dosage: 50 MG/KG/DAY
     Route: 065
  10. ASPIRIN [Suspect]
     Active Substance: ASPIRIN
     Indication: Pneumonia
  11. CLOPIDOGREL [Suspect]
     Active Substance: CLOPIDOGREL BISULFATE
     Indication: Hepatosplenomegaly
     Route: 065
  12. CLOPIDOGREL [Suspect]
     Active Substance: CLOPIDOGREL BISULFATE
     Indication: Ascites
  13. IBUPROFEN [Suspect]
     Active Substance: IBUPROFEN
     Indication: Ascites
     Route: 065
  14. IBUPROFEN [Suspect]
     Active Substance: IBUPROFEN
     Indication: Hepatosplenomegaly
  15. ACETAMINOPHEN [Suspect]
     Active Substance: ACETAMINOPHEN
     Indication: Ascites
     Route: 065
  16. ACETAMINOPHEN [Suspect]
     Active Substance: ACETAMINOPHEN
     Indication: Hepatosplenomegaly

REACTIONS (6)
  - Ventricular tachyarrhythmia [Fatal]
  - Multisystem inflammatory syndrome [Fatal]
  - COVID-19 pneumonia [Fatal]
  - Acute left ventricular failure [Fatal]
  - Drug ineffective [Fatal]
  - Off label use [Unknown]
